FAERS Safety Report 9765832 (Version 1)
Quarter: 2013Q4

REPORT INFORMATION
  Report Type: Spontaneous
  Country: US (occurrence: US)
  Receive Date: 20131217
  Receipt Date: 20131217
  Transmission Date: 20140711
  Serious: No
  Sender: FDA-Public Use
  Company Number: US-GLAXOSMITHKLINE-A1011905A

PATIENT
  Age: 76 Year
  Sex: Male

DRUGS (8)
  1. VOTRIENT [Suspect]
     Indication: RENAL CANCER
     Dosage: 600MG PER DAY
     Route: 048
     Dates: start: 20110416
  2. PROTONIX [Concomitant]
  3. SELENIUM [Concomitant]
  4. INOSITOL [Concomitant]
  5. TYLENOL [Concomitant]
  6. VITAMIN D [Concomitant]
  7. SEROQUEL [Concomitant]
  8. ALPRAZOLAM [Concomitant]

REACTIONS (2)
  - Diarrhoea [Not Recovered/Not Resolved]
  - Nausea [Not Recovered/Not Resolved]
